FAERS Safety Report 18564345 (Version 2)
Quarter: 2022Q4

REPORT INFORMATION
  Report Type: Spontaneous
  Country: DE (occurrence: DE)
  Receive Date: 20201201
  Receipt Date: 20221020
  Transmission Date: 20230113
  Serious: Yes (Hospitalization)
  Sender: FDA-Public Use
  Company Number: None

PATIENT
  Age: 44 Year
  Sex: Male

DRUGS (3)
  1. CITALOPRAM [Suspect]
     Active Substance: CITALOPRAM HYDROBROMIDE
     Indication: Product used for unknown indication
     Dosage: 20 MG, 1-0-0-0
     Route: 048
  2. FENOTEROL [Concomitant]
     Active Substance: FENOTEROL
     Indication: Product used for unknown indication
     Dosage: 0.1 MG, AS NECESSARY, METERED-DOSE INHALER
     Route: 055
  3. THEOPHYLLINE [Concomitant]
     Active Substance: THEOPHYLLINE
     Indication: Product used for unknown indication
     Dosage: 200 MG, 1-0-0-0
     Route: 048

REACTIONS (4)
  - Decreased appetite [Unknown]
  - Depressed mood [Unknown]
  - Hyperhidrosis [Unknown]
  - Condition aggravated [Unknown]
